FAERS Safety Report 13769678 (Version 2)
Quarter: 2018Q3

REPORT INFORMATION
  Report Type: Spontaneous
  Country: GB (occurrence: GB)
  Receive Date: 20170719
  Receipt Date: 20180925
  Transmission Date: 20181010
  Serious: Yes (Other)
  Sender: FDA-Public Use
  Company Number: GB-PFIZER INC-2799508

PATIENT
  Sex: Male

DRUGS (4)
  1. XARELTO [Interacting]
     Active Substance: RIVAROXABAN
     Indication: EMBOLISM VENOUS
  2. PHENYTOIN. [Suspect]
     Active Substance: PHENYTOIN
     Indication: DRUG THERAPY
  3. XARELTO [Interacting]
     Active Substance: RIVAROXABAN
     Indication: THROMBOSIS
     Dosage: UNK
     Dates: start: 2015
  4. KEPPRA [Interacting]
     Active Substance: LEVETIRACETAM
     Indication: DRUG THERAPY

REACTIONS (2)
  - Drug ineffective [Unknown]
  - Drug interaction [Unknown]
